FAERS Safety Report 5727776-5 (Version None)
Quarter: 2008Q2

REPORT INFORMATION
  Report Type: 
  Country: None (occurrence: None)
  Receive Date: 20080505
  Receipt Date: 20080427
  Transmission Date: 20081010
  Serious: Yes (Other)
  Sender: FDA-Public Use
  Company Number: US-PFIZER INC-2008036343

PATIENT
  Sex: Male
  Weight: 63.5 kg

DRUGS (5)
  1. CELEBREX [Suspect]
     Indication: OSTEOARTHRITIS
  2. HYZAAR [Concomitant]
     Indication: HYPERTENSION
  3. CARDURA [Concomitant]
     Indication: HYPERTENSION
  4. WARFARIN SODIUM [Concomitant]
  5. TESTOSTERONE [Concomitant]

REACTIONS (3)
  - ARTHROPATHY [None]
  - DYSPEPSIA [None]
  - PAIN [None]
